FAERS Safety Report 14483376 (Version 1)
Quarter: 2018Q1

REPORT INFORMATION
  Report Type: Spontaneous
  Country: US (occurrence: US)
  Receive Date: 20180204
  Receipt Date: 20180204
  Transmission Date: 20180509
  Serious: No
  Sender: FDA-Public Use
  Company Number: US-TARO-2017TAR00281

PATIENT
  Sex: Female
  Weight: 63.49 kg

DRUGS (5)
  1. KETOCONAZOLE CREAM 2% [Suspect]
     Active Substance: KETOCONAZOLE
     Indication: TINEA PEDIS
     Dosage: UNK UNK, 2X/DAY
     Route: 061
     Dates: start: 201606, end: 201612
  2. KETOCONAZOLE CREAM 2% [Suspect]
     Active Substance: KETOCONAZOLE
     Dosage: UNK UNK, 2X/DAY
     Route: 061
     Dates: start: 2016
  3. WELLBUTRIN [Concomitant]
     Active Substance: BUPROPION HYDROCHLORIDE
     Dosage: 150 MG, 1X/DAY
  4. KETOCONAZOLE CREAM 2% [Suspect]
     Active Substance: KETOCONAZOLE
     Dosage: UNK UNK, 2X/DAY
     Route: 061
     Dates: start: 2016
  5. CENTRUM VITAMINS [Concomitant]
     Dosage: UNK

REACTIONS (4)
  - Inappropriate schedule of drug administration [Recovered/Resolved]
  - Incorrect drug administration duration [Recovered/Resolved]
  - Drug ineffective [Recovered/Resolved]
  - Tinea pedis [Recovering/Resolving]

NARRATIVE: CASE EVENT DATE: 2016
